FAERS Safety Report 9862436 (Version 2)
Quarter: 2014Q1

REPORT INFORMATION
  Report Type: Spontaneous
  Country: FR (occurrence: FR)
  Receive Date: 20140203
  Receipt Date: 20140206
  Transmission Date: 20141002
  Serious: Yes (Congenital Anomaly)
  Sender: FDA-Public Use
  Company Number: FR-009507513-1401FRA011387

PATIENT
  Age: 1 Day
  Sex: Female

DRUGS (4)
  1. NEXPLANON [Suspect]
     Indication: CONTRACEPTION
     Dosage: UNK
     Route: 064
     Dates: end: 201309
  2. TEGRETOL [Suspect]
     Dosage: UNK
     Route: 064
     Dates: end: 201306
  3. BI-PROFENID [Suspect]
     Dosage: UNK
     Route: 064
     Dates: end: 20130926
  4. DAFALGAN CODEINE [Suspect]
     Route: 064

REACTIONS (3)
  - Coarctation of the aorta [Recovering/Resolving]
  - Ventricular septal defect [Recovering/Resolving]
  - Foetal exposure during pregnancy [Unknown]
